FAERS Safety Report 5022697-8 (Version None)
Quarter: 2006Q2

REPORT INFORMATION
  Report Type: 
  Country: None (occurrence: None)
  Receive Date: 20060605
  Receipt Date: 20060519
  Transmission Date: 20061013
  Serious: Yes (Death)
  Sender: FDA-Public Use
  Company Number: JP200604003450

PATIENT
  Age: 81 Year
  Sex: Male
  Weight: 57 kg

DRUGS (6)
  1. GEMCITABINE HYDROCHLORIDE (GEMCITABINE HYDROCHLORIDE) VIAL [Suspect]
     Indication: LUNG SQUAMOUS CELL CARCINOMA STAGE III
     Dosage: 800 MG, OTHER, INTRAVENOUS
     Route: 042
     Dates: start: 20060221
  2. SEROTONE (AZASETRON HYDROCHLORIDE) [Concomitant]
  3. DECADRON #1 (DEXAMETHASONE SODIUM PHOSPHATE) [Concomitant]
  4. LOXONIN (LOXOPROFEN SODIUM) [Concomitant]
  5. CYTOTEC /IRE/ (MISOPROSTOL) [Concomitant]
  6. TANATRIL ^TANABE^ (IMIDAPRIL HYDROCHLORIDE) [Concomitant]

REACTIONS (3)
  - BLOOD LACTATE DEHYDROGENASE INCREASED [None]
  - NEUTROPHIL PERCENTAGE INCREASED [None]
  - PNEUMONITIS [None]
